FAERS Safety Report 8505539 (Version 2)
Quarter: 2013Q1

REPORT INFORMATION
  Report Type: Spontaneous
  Country: GR (occurrence: GR)
  Receive Date: 20120412
  Receipt Date: 20130118
  Transmission Date: 20140127
  Serious: Yes (Hospitalization)
  Sender: FDA-Public Use
  Company Number: GR-B.I. PHARMACEUTICALS,INC./RIDGEFIELD-2012-EU-01981GB

PATIENT
  Age: 65 Year
  Sex: Female

DRUGS (2)
  1. PRADAXA [Suspect]
     Indication: ATRIAL FIBRILLATION
     Dosage: 220 MG
     Route: 048
     Dates: start: 201203, end: 201203
  2. UNSPECIFIED ANTI-HYPERTENSIVE DRUG [Concomitant]
     Indication: HYPERTENSION

REACTIONS (1)
  - Pancreatitis [Recovered/Resolved]
